FAERS Safety Report 7321282-2 (Version None)
Quarter: 2011Q1

REPORT INFORMATION
  Report Type: 
  Country: None (occurrence: None)
  Receive Date: 20110228
  Receipt Date: 20100310
  Transmission Date: 20110831
  Serious: Yes (Other)
  Sender: FDA-Public Use
  Company Number: US-PFIZER INC-2010031621

PATIENT

DRUGS (1)
  1. GEODON [Suspect]

REACTIONS (1)
  - SYNCOPE [None]
